FAERS Safety Report 8852886 (Version 1)
Quarter: 2012Q4

REPORT INFORMATION
  Report Type: Report from Study
  Country: DE (occurrence: DE)
  Receive Date: 20121022
  Receipt Date: 20121022
  Transmission Date: 20130627
  Serious: Yes (Hospitalization)
  Sender: FDA-Public Use
  Company Number: DE-BAXTER-2012BAX020123

PATIENT
  Age: 61 Year
  Sex: Male

DRUGS (7)
  1. ENDOXAN 1G [Suspect]
     Indication: NODULAR (FOLLICULAR) LYMPHOMA
     Route: 042
     Dates: start: 20110401, end: 20110511
  2. RITUXIMAB [Suspect]
     Indication: NODULAR (FOLLICULAR) LYMPHOMA
     Route: 042
     Dates: start: 20110331, end: 20110511
  3. DOXORUBICIN HYDROCHLORIDE [Suspect]
     Indication: NODULAR (FOLLICULAR) LYMPHOMA
     Route: 042
     Dates: start: 20110401, end: 20110511
  4. VINCRISTINE SULFATE [Suspect]
     Indication: NODULAR (FOLLICULAR) LYMPHOMA
     Route: 042
     Dates: start: 20110401, end: 20110511
  5. TAMSULOSIN [Concomitant]
     Indication: DRUG USE FOR UNKNOWN INDICATION
     Route: 065
  6. PANTOZOL [Concomitant]
     Indication: DRUG USE FOR UNKNOWN INDICATION
     Route: 065
  7. IRENAT [Concomitant]
     Indication: DRUG USE FOR UNKNOWN INDICATION
     Route: 065

REACTIONS (1)
  - Pneumonia [Recovered/Resolved]
